FAERS Safety Report 15114870 (Version 4)
Quarter: 2018Q3

REPORT INFORMATION
  Report Type: Spontaneous
  Country: JP (occurrence: JP)
  Receive Date: 20180706
  Receipt Date: 20180824
  Transmission Date: 20181010
  Serious: Yes (Hospitalization)
  Sender: FDA-Public Use
  Company Number: JP-ASTRAZENECA-2018SE85723

PATIENT
  Age: 30015 Day
  Sex: Female
  Weight: 41 kg

DRUGS (9)
  1. REBAMIPIDE [Concomitant]
     Active Substance: REBAMIPIDE
     Dosage: AFTER BREAKFAST AND DINNER
     Route: 048
     Dates: start: 20180613, end: 20180622
  2. NOVORAPID [Concomitant]
     Active Substance: INSULIN ASPART
     Indication: TYPE 2 DIABETES MELLITUS
     Dosage: MORNINGS AND EVENINGS
     Route: 065
     Dates: start: 20180530
  3. BAKTAR [Concomitant]
     Active Substance: SULFAMETHOXAZOLE\TRIMETHOPRIM
     Dosage: AFTER DINNER
     Route: 048
     Dates: start: 20180613, end: 20180619
  4. IRESSA [Suspect]
     Active Substance: GEFITINIB
     Indication: LUNG ADENOCARCINOMA STAGE IV
     Route: 048
     Dates: start: 20180613, end: 20180619
  5. PREDONINE [Concomitant]
     Active Substance: PREDNISOLONE
     Dosage: AFTER BREAKFAST
     Route: 048
     Dates: start: 20180613, end: 20180704
  6. CELECOX [Concomitant]
     Active Substance: CELECOXIB
     Dosage: AFTER BREAKFAST AND DINNER
     Route: 048
     Dates: start: 20180613, end: 20180622
  7. GLIMEPIRIDE. [Concomitant]
     Active Substance: GLIMEPIRIDE
     Indication: TYPE 2 DIABETES MELLITUS
     Dosage: AFTER BREAKFAST
     Route: 048
     Dates: start: 20180530
  8. LANSOPRAZOLE. [Concomitant]
     Active Substance: LANSOPRAZOLE
     Dosage: AFTER DINNER
     Route: 048
     Dates: start: 20180613, end: 20180619
  9. NOVORAPID [Concomitant]
     Active Substance: INSULIN ASPART
     Indication: TYPE 2 DIABETES MELLITUS
     Dosage: NOONS
     Route: 065
     Dates: start: 20180530

REACTIONS (1)
  - Febrile neutropenia [Recovered/Resolved]

NARRATIVE: CASE EVENT DATE: 20180619
